FAERS Safety Report 7829423-5 (Version None)
Quarter: 2011Q4

REPORT INFORMATION
  Report Type: 
  Country: None (occurrence: None)
  Receive Date: 20111020
  Receipt Date: 20111007
  Transmission Date: 20120403
  Serious: Yes (Death, Other)
  Sender: FDA-Public Use
  Company Number: US-WATSON-2011-02328

PATIENT
  Sex: Female
  Weight: 59.41 kg

DRUGS (3)
  1. OXYCODONE HCL [Concomitant]
     Indication: PAIN
     Dosage: TAKE 1 TABLET EVERY 4 TO 6 HOURS AS NEEDED FOR PAIN
     Route: 048
  2. FENTANYL-75 [Suspect]
     Indication: PAIN
     Dosage: APPLY ONE PATCH EVERY 2 TO 3 DAYS
     Route: 062
     Dates: start: 20100127, end: 20100128
  3. VALIUM [Concomitant]
     Indication: ANXIETY
     Dosage: TAKE ONE TABLET THREE TIMES A DAY AS NEEDED FOR ANXIETY
     Route: 048

REACTIONS (10)
  - TOXICITY TO VARIOUS AGENTS [None]
  - OVERDOSE [None]
  - VISCERAL CONGESTION [None]
  - ARTERIOSCLEROSIS CORONARY ARTERY [None]
  - RENAL CYST [None]
  - LEFT VENTRICULAR HYPERTROPHY [None]
  - AORTIC ARTERIOSCLEROSIS [None]
  - OSTEOPOROSIS [None]
  - PULMONARY OEDEMA [None]
  - HEPATIC STEATOSIS [None]
